FAERS Safety Report 13733189 (Version 1)
Quarter: 2017Q3

REPORT INFORMATION
  Report Type: Spontaneous
  Country: US (occurrence: US)
  Receive Date: 20170707
  Receipt Date: 20170707
  Transmission Date: 20171127
  Serious: No
  Sender: FDA-Public Use
  Company Number: US-ROCHE-1382995

PATIENT
  Age: 50 Year
  Sex: Female

DRUGS (8)
  1. CHLORAMBUCIL [Concomitant]
     Active Substance: CHLORAMBUCIL
     Indication: CHRONIC LYMPHOCYTIC LEUKAEMIA
     Dosage: DISCONTINUED
     Route: 065
  2. CHLORAMBUCIL [Concomitant]
     Active Substance: CHLORAMBUCIL
     Indication: NECK MASS
  3. GAZYVA [Suspect]
     Active Substance: OBINUTUZUMAB
     Indication: NECK MASS
     Dosage: ON DAY 2
     Route: 065
  4. GAZYVA [Suspect]
     Active Substance: OBINUTUZUMAB
     Indication: CHRONIC LYMPHOCYTIC LEUKAEMIA
     Dosage: ON DAY 1
     Route: 065
  5. RITUXAN [Suspect]
     Active Substance: RITUXIMAB
     Indication: NECK MASS
  6. BENDAMUSTINE [Concomitant]
     Active Substance: BENDAMUSTINE
  7. GAZYVA [Suspect]
     Active Substance: OBINUTUZUMAB
     Dosage: ON DAY 3, DISCONTINUED AFTER THIS 3RD DOSE
     Route: 065
  8. RITUXAN [Suspect]
     Active Substance: RITUXIMAB
     Indication: CHRONIC LYMPHOCYTIC LEUKAEMIA
     Route: 065

REACTIONS (2)
  - Drug ineffective [Unknown]
  - Disease progression [Recovered/Resolved]
